FAERS Safety Report 20707547 (Version 2)
Quarter: 2022Q2

REPORT INFORMATION
  Report Type: Spontaneous
  Country: DE (occurrence: DE)
  Receive Date: 20220413
  Receipt Date: 20220426
  Transmission Date: 20220720
  Serious: Yes (Other)
  Sender: FDA-Public Use
  Company Number: DE-TEVA-2022-DE-2025766

PATIENT
  Age: 69 Year
  Sex: Male
  Weight: 66 kg

DRUGS (3)
  1. CIPROFLOXACIN [Suspect]
     Active Substance: CIPROFLOXACIN
     Indication: Antibiotic therapy
     Dosage: 500 MILLIGRAM DAILY;
     Route: 048
  2. PIPERACILLIN\SULBACTAM [Suspect]
     Active Substance: PIPERACILLIN\SULBACTAM
     Indication: Antibiotic therapy
     Dosage: 3GRAM X 4.5 GRAM DAILY FOR FIVE DAYS
     Route: 042
  3. PIPERACILLIN\SULBACTAM [Suspect]
     Active Substance: PIPERACILLIN\SULBACTAM
     Indication: Diverticulitis

REACTIONS (2)
  - Clostridium difficile colitis [Recovered/Resolved]
  - Arthritis reactive [Recovering/Resolving]
